FAERS Safety Report 7516791-7 (Version None)
Quarter: 2011Q2

REPORT INFORMATION
  Report Type: 
  Country: None (occurrence: None)
  Receive Date: 20110523
  Receipt Date: 20110420
  Transmission Date: 20111010
  Serious: Yes (Death)
  Sender: FDA-Public Use
  Company Number: 1000005980

PATIENT
  Age: 7 Year
  Sex: Male
  Weight: 30.391 kg

DRUGS (7)
  1. LEXAPRO [Suspect]
     Indication: OBSESSIVE THOUGHTS
     Dosage: 5 MG (5 MG, 1 IN 1 D) ,ORAL
     Route: 048
     Dates: start: 20090203, end: 20090318
  2. LEXAPRO [Suspect]
     Indication: ANXIETY
     Dosage: 5 MG (5 MG, 1 IN 1 D) ,ORAL
     Route: 048
     Dates: start: 20090203, end: 20090318
  3. SYMEYAX (ULANZAPINE, FLUOXETINE) [Suspect]
     Indication: IMPULSE-CONTROL DISORDER
     Dosage: 3MG/25MG (1 IN 1 D)
     Dates: start: 20090318, end: 20090416
  4. SYMEYAX (ULANZAPINE, FLUOXETINE) [Suspect]
     Indication: ANGER
     Dosage: 3MG/25MG (1 IN 1 D)
     Dates: start: 20090318, end: 20090416
  5. SYMEYAX (ULANZAPINE, FLUOXETINE) [Suspect]
     Indication: AGGRESSION
     Dosage: 3MG/25MG (1 IN 1 D)
     Dates: start: 20090318, end: 20090416
  6. VYVANSE [Suspect]
     Indication: ATTENTION DEFICIT/HYPERACTIVITY DISORDER
     Dosage: 30 MG (30 MG,1 IN 1 D),ORAL,  50 MG (50 MG,1 IN 1 D),ORAL
     Route: 048
     Dates: start: 20090331, end: 20090416
  7. VYVANSE [Suspect]
     Indication: ATTENTION DEFICIT/HYPERACTIVITY DISORDER
     Dosage: 30 MG (30 MG,1 IN 1 D),ORAL,  50 MG (50 MG,1 IN 1 D),ORAL
     Route: 048
     Dates: start: 20081209, end: 20090330

REACTIONS (5)
  - ASPHYXIA [None]
  - CONDITION AGGRAVATED [None]
  - ABNORMAL BEHAVIOUR [None]
  - IMPULSIVE BEHAVIOUR [None]
  - COMPLETED SUICIDE [None]
